FAERS Safety Report 8605366-4 (Version None)
Quarter: 2012Q3

REPORT INFORMATION
  Report Type: 
  Country: None (occurrence: None)
  Receive Date: 20120820
  Receipt Date: 20120611
  Transmission Date: 20120928
  Serious: No
  Sender: FDA-Public Use
  Company Number: US-009507513-1208USA000263

PATIENT

DRUGS (4)
  1. MIRALAX [Suspect]
     Indication: PRODUCT USED FOR UNKNOWN INDICATION
     Dosage: 17 G, ONCE
     Route: 048
     Dates: start: 20120606
  2. BENTYL [Concomitant]
     Indication: ABDOMINAL PAIN
     Dosage: UNK, UNKNOWN
  3. MIRALAX [Suspect]
     Indication: MEDICAL OBSERVATION
     Dosage: 34 G, ONCE
     Route: 048
     Dates: start: 20120607
  4. BENTYL [Concomitant]
     Indication: IRRITABLE BOWEL SYNDROME

REACTIONS (2)
  - OVERDOSE [None]
  - DIARRHOEA [None]
